FAERS Safety Report 15878971 (Version 1)
Quarter: 2019Q1

REPORT INFORMATION
  Report Type: Spontaneous
  Country: US (occurrence: US)
  Receive Date: 20190103
  Receipt Date: 20190103
  Transmission Date: 20190417
  Serious: No
  Sender: FDA-Public Use
  Company Number: None

PATIENT
  Age: 62 Year
  Sex: Female

DRUGS (1)
  1. IBRANCE [Suspect]
     Active Substance: PALBOCICLIB
     Indication: BREAST CANCER
     Dosage: ?          OTHER FREQUENCY:QDX21D EVERY 28 DA;?
     Route: 048
     Dates: start: 20180420

REACTIONS (2)
  - Blood count abnormal [None]
  - Hepatic enzyme increased [None]

NARRATIVE: CASE EVENT DATE: 20181220
